FAERS Safety Report 8574829 (Version 2)
Quarter: 2012Q4

REPORT INFORMATION
  Report Type: Report from Study
  Country: US (occurrence: US)
  Receive Date: 20120522
  Receipt Date: 20121001
  Transmission Date: 20130627
  Serious: Yes (Hospitalization)
  Sender: FDA-Public Use
  Company Number: US-TEVA-338346USA

PATIENT
  Age: 62 Year
  Sex: Female
  Weight: 118 kg

DRUGS (16)
  1. TREANDA [Suspect]
     Indication: MULTIPLE MYELOMA
     Dosage: Days 1-2
     Route: 042
     Dates: start: 20110816, end: 20110817
  2. TREANDA [Suspect]
     Route: 042
     Dates: start: 20110920, end: 20120118
  3. LENALIDOMIDE [Suspect]
     Indication: MULTIPLE MYELOMA
     Dates: start: 20110816
  4. DEXAMETHASONE [Suspect]
     Indication: MULTIPLE MYELOMA
     Dates: start: 20110816
  5. ACETYLSALICYLIC ACID [Concomitant]
     Dates: start: 20110816
  6. ZOLEDRONIC ACID [Concomitant]
     Dates: start: 20080226
  7. PREGABALIN [Concomitant]
     Dates: start: 20100212
  8. VALSARTAN [Concomitant]
     Dates: start: 20110101
  9. CLONIDINE [Concomitant]
     Dates: start: 20110101
  10. FUROSEMIDE [Concomitant]
     Dates: start: 20110101
  11. ALPRAZOLAM [Concomitant]
     Dates: start: 20110101
  12. AMITRIPTYLINE HYDROCHLORIDE [Concomitant]
     Dates: start: 20110101
  13. CARVEDILOL [Concomitant]
     Dates: start: 20110101
  14. CELECOXIB [Concomitant]
     Dates: start: 20110701
  15. GRANISETRON [Concomitant]
     Dates: start: 20110816
  16. NUCOCHEM PEDIATRIC [Concomitant]
     Dates: start: 20110913

REACTIONS (1)
  - Syncope [Recovered/Resolved]
